FAERS Safety Report 11726904 (Version 1)
Quarter: 2015Q4

REPORT INFORMATION
  Report Type: Spontaneous
  Country: GR (occurrence: GR)
  Receive Date: 20151112
  Receipt Date: 20151112
  Transmission Date: 20160304
  Serious: Yes (Other)
  Sender: FDA-Public Use
  Company Number: GR-009507513-1511GRC003787

PATIENT
  Age: 69 Year
  Sex: Male

DRUGS (1)
  1. EZETROL [Suspect]
     Active Substance: EZETIMIBE
     Indication: DYSLIPIDAEMIA
     Dosage: 1 TB EVERY DAY, PER OS
     Route: 048
     Dates: start: 2005

REACTIONS (1)
  - Vascular graft [Unknown]

NARRATIVE: CASE EVENT DATE: 2009
